FAERS Safety Report 18203439 (Version 1)
Quarter: 2020Q3

REPORT INFORMATION
  Report Type: Spontaneous
  Country: GB (occurrence: GB)
  Receive Date: 20200827
  Receipt Date: 20200827
  Transmission Date: 20201103
  Serious: Yes (Death, Other)
  Sender: FDA-Public Use
  Company Number: GB-GILEAD-2020-0492284

PATIENT
  Age: 54 Year
  Sex: Female
  Weight: 63.3 kg

DRUGS (8)
  1. MACROGOL [Concomitant]
     Active Substance: POLYETHYLENE GLYCOLS
  2. MEROPENEM. [Concomitant]
     Active Substance: MEROPENEM
  3. BECLOMETASONE [Concomitant]
     Active Substance: BECLOMETHASONE DIPROPIONATE
  4. AXICABTAGENE CILOLEUCEL [Suspect]
     Active Substance: AXICABTAGENE CILOLEUCEL
     Indication: DIFFUSE LARGE B-CELL LYMPHOMA
     Dosage: 1 DOSAGE FORM; 1?2 X10^6 CAR+ T CELLS/KG
     Route: 042
     Dates: start: 20190522, end: 20190522
  5. ACICLOVIR [Concomitant]
     Active Substance: ACYCLOVIR
  6. TAZOCIN [Concomitant]
     Active Substance: PIPERACILLIN SODIUM\TAZOBACTAM SODIUM
  7. MORPHINE [Concomitant]
     Active Substance: MORPHINE
  8. OMEPRAZOLE. [Concomitant]
     Active Substance: OMEPRAZOLE

REACTIONS (2)
  - Sarcomatoid mesothelioma [Fatal]
  - Adenocarcinoma metastatic [Fatal]

NARRATIVE: CASE EVENT DATE: 20200312
